FAERS Safety Report 4638735-8 (Version None)
Quarter: 2005Q2

REPORT INFORMATION
  Report Type: 
  Country: None (occurrence: None)
  Receive Date: 20050328
  Receipt Date: 20050117
  Transmission Date: 20051028
  Serious: No
  Sender: FDA-Public Use
  Company Number: US_0502111728

PATIENT
  Age: 22 Year
  Sex: Female

DRUGS (1)
  1. STRATTERA [Suspect]
     Indication: ATTENTION DEFICIT/HYPERACTIVITY DISORDER
     Dosage: 40 MG/TWICE DAY
     Dates: start: 20040101

REACTIONS (4)
  - ABNORMAL DREAMS [None]
  - FEELING ABNORMAL [None]
  - PALPITATIONS [None]
  - URTICARIA [None]
